FAERS Safety Report 8021781-4 (Version None)
Quarter: 2012Q1

REPORT INFORMATION
  Report Type: 
  Country: None (occurrence: None)
  Receive Date: 20120104
  Receipt Date: 20111226
  Transmission Date: 20120608
  Serious: Yes (Hospitalization)
  Sender: FDA-Public Use
  Company Number: BR-ASTRAZENECA-2011SE05505

PATIENT
  Age: 379 Month
  Sex: Female
  Weight: 60 kg

DRUGS (2)
  1. ZOLADEX [Suspect]
     Indication: ENDOMETRIOSIS
     Route: 058
     Dates: start: 20080301, end: 20080501
  2. ZOLADEX [Suspect]
     Route: 058

REACTIONS (2)
  - ENDOMETRIOSIS [None]
  - DRUG INEFFECTIVE [None]
